FAERS Safety Report 8547510-3 (Version None)
Quarter: 2012Q3

REPORT INFORMATION
  Report Type: 
  Country: None (occurrence: None)
  Receive Date: 20120727
  Receipt Date: 20120501
  Transmission Date: 20120928
  Serious: No
  Sender: FDA-Public Use
  Company Number: US-ASTRAZENECA-2012SE20624

PATIENT
  Age: 44 Year
  Sex: Female
  Weight: 79.4 kg

DRUGS (10)
  1. ZOLOFT [Concomitant]
  2. ADDERALL 5 [Concomitant]
     Indication: ATTENTION DEFICIT/HYPERACTIVITY DISORDER
  3. AMBIEN [Concomitant]
  4. SEROQUEL [Suspect]
     Indication: BIPOLAR I DISORDER
     Route: 048
  5. FLEXERIL [Concomitant]
     Indication: MYALGIA
  6. LEVOXYL [Concomitant]
     Indication: THYROID DISORDER
  7. VALIUM [Concomitant]
     Indication: DEPRESSION
  8. CYMBALTA [Concomitant]
     Indication: DEPRESSION
  9. CYMBALTA [Concomitant]
     Indication: FIBROMYALGIA
  10. NORCO [Concomitant]
     Indication: PAIN

REACTIONS (8)
  - KLEPTOMANIA [None]
  - AGGRESSION [None]
  - AGITATION [None]
  - INTENTIONAL DRUG MISUSE [None]
  - OBSESSIVE-COMPULSIVE PERSONALITY DISORDER [None]
  - SELF-INJURIOUS IDEATION [None]
  - ABNORMAL BEHAVIOUR [None]
  - PANIC ATTACK [None]
